FAERS Safety Report 4921077-0 (Version None)
Quarter: 2006Q1

REPORT INFORMATION
  Report Type: 
  Country: None (occurrence: None)
  Receive Date: 20060223
  Receipt Date: 20051114
  Transmission Date: 20060701
  Serious: Yes (Hospitalization)
  Sender: FDA-Public Use
  Company Number: US-MERCK-0511USA02585

PATIENT
  Age: 47 Year
  Sex: Female
  Weight: 112 kg

DRUGS (2)
  1. VIOXX [Suspect]
     Route: 048
  2. BEXTRA [Suspect]
     Route: 048

REACTIONS (16)
  - ANHEDONIA [None]
  - ANXIETY [None]
  - BACK PAIN [None]
  - BURNING SENSATION [None]
  - CARDIAC FAILURE CONGESTIVE [None]
  - CARDIOVASCULAR DISORDER [None]
  - CELLULITIS [None]
  - CEREBROVASCULAR ACCIDENT [None]
  - DEEP VEIN THROMBOSIS [None]
  - LYMPHADENOPATHY [None]
  - MYOCARDIAL INFARCTION [None]
  - PARAESTHESIA [None]
  - PULMONARY EMBOLISM [None]
  - RENAL DISORDER [None]
  - RENAL FAILURE [None]
  - THROMBOSIS [None]
